FAERS Safety Report 7067952-5 (Version None)
Quarter: 2010Q4

REPORT INFORMATION
  Report Type: 
  Country: None (occurrence: None)
  Receive Date: 20101027
  Receipt Date: 20101027
  Transmission Date: 20110411
  Serious: Yes (Life-Threatening, Hospitalization, Other)
  Sender: FDA-Public Use
  Company Number: None

PATIENT
  Age: 22 Year
  Sex: Female
  Weight: 54.4316 kg

DRUGS (1)
  1. EFFEXOR XR [Suspect]
     Indication: MAJOR DEPRESSION
     Dosage: 150MG TID PO
     Route: 048
     Dates: start: 20100114, end: 20101026

REACTIONS (25)
  - AGITATION [None]
  - ANXIETY [None]
  - COLD SWEAT [None]
  - DELUSION [None]
  - DEPRESSION [None]
  - DRUG PRESCRIBING ERROR [None]
  - EATING DISORDER [None]
  - EXTRASYSTOLES [None]
  - FATIGUE [None]
  - FEELING ABNORMAL [None]
  - HALLUCINATION [None]
  - HEADACHE [None]
  - HEART RATE IRREGULAR [None]
  - IRRITABILITY [None]
  - NAUSEA [None]
  - NIGHT SWEATS [None]
  - NIGHTMARE [None]
  - PAIN [None]
  - PARANOIA [None]
  - SCAR [None]
  - SEDATION [None]
  - STRESS [None]
  - SUICIDE ATTEMPT [None]
  - VOMITING [None]
  - WITHDRAWAL SYNDROME [None]
